FAERS Safety Report 6329386-8 (Version None)
Quarter: 2009Q3

REPORT INFORMATION
  Report Type: 
  Country: None (occurrence: None)
  Receive Date: 20090826
  Receipt Date: 20090818
  Transmission Date: 20100115
  Serious: Yes (Hospitalization)
  Sender: FDA-Public Use
  Company Number: A0730960A

PATIENT
  Age: 55 Year
  Sex: Female
  Weight: 118.2 kg

DRUGS (4)
  1. AVANDIA [Suspect]
     Dosage: 4MG PER DAY
     Route: 048
     Dates: start: 19990101, end: 20030101
  2. GLUCOPHAGE [Concomitant]
     Dates: start: 19980101, end: 20030101
  3. METFORMIN HCL [Concomitant]
     Dates: start: 19980101, end: 20030101
  4. NOVOLIN R [Concomitant]
     Dates: start: 20000101

REACTIONS (3)
  - CARDIAC FAILURE CONGESTIVE [None]
  - INJURY [None]
  - MYOCARDIAL INFARCTION [None]
